FAERS Safety Report 10068463 (Version 3)
Quarter: 2014Q2

REPORT INFORMATION
  Report Type: Report from Study
  Country: DE (occurrence: DE)
  Receive Date: 20140409
  Receipt Date: 20140526
  Transmission Date: 20141212
  Serious: Yes (Hospitalization)
  Sender: FDA-Public Use
  Company Number: DE-TEVA-462737GER

PATIENT
  Age: 62 Year
  Sex: Female
  Weight: 87 kg

DRUGS (5)
  1. GEMCITABIN-GRY 1000 MG [Suspect]
     Indication: BREAST CANCER FEMALE
     Route: 042
     Dates: start: 20140117
  2. ABRAXANE [Suspect]
     Indication: BREAST CANCER FEMALE
     Route: 042
     Dates: start: 20140117, end: 20140219
  3. RAMIPRIL [Concomitant]
     Dosage: 10 MILLIGRAM DAILY;
     Dates: start: 20140124
  4. HCT [Concomitant]
     Dosage: 12.5 MILLIGRAM DAILY;
     Dates: start: 20140124
  5. CORIFEO [Concomitant]
     Dosage: 10 MILLIGRAM DAILY;
     Dates: start: 20140124

REACTIONS (1)
  - Cerebral ischaemia [Recovered/Resolved with Sequelae]
